FAERS Safety Report 8897723 (Version 1)
Quarter: 2012Q4

REPORT INFORMATION
  Report Type: 
  Country: US (occurrence: US)
  Receive Date: 20121108
  Receipt Date: 20121108
  Transmission Date: 20130627
  Serious: No
  Sender: FDA-Public Use
  Company Number: US-AMGEN-USASP2012024815

PATIENT
  Age: 64 Year
  Sex: Female
  Weight: 63.49 kg

DRUGS (8)
  1. ENBREL [Suspect]
     Indication: PRODUCT USED FOR UNKNOWN INDICATION
     Dosage: 25 mg, 2 times/wk
     Route: 058
  2. NEXIUM                             /01479302/ [Concomitant]
     Dosage: 20 mg, UNK
  3. PREMARIN [Concomitant]
     Dosage: 0.625 mg, UNK
  4. MULTIVITAMINS WITH MINERALS        /02319901/ [Concomitant]
  5. BONIVA [Concomitant]
     Dosage: 2.5 mg, UNK
  6. SINGULAIR [Concomitant]
     Dosage: 10 mg, UNK
  7. FLEXERIL                           /00428402/ [Concomitant]
     Dosage: 5 mg, UNK
  8. CALCIUM [Concomitant]

REACTIONS (1)
  - Bronchitis [Unknown]
